FAERS Safety Report 23443394 (Version 1)
Quarter: 2024Q1

REPORT INFORMATION
  Report Type: Spontaneous
  Country: IT (occurrence: IT)
  Receive Date: 20240125
  Receipt Date: 20240125
  Transmission Date: 20240409
  Serious: Yes (Life-Threatening, Hospitalization)
  Sender: FDA-Public Use
  Company Number: IT-009507513-2212ITA003188

PATIENT
  Age: 36 Year
  Sex: Female

DRUGS (17)
  1. CYCLOPHOSPHAMIDE [Suspect]
     Active Substance: CYCLOPHOSPHAMIDE
     Dosage: 972 MILLIGRAM 1ST CYCLE, Q3W
     Route: 065
     Dates: start: 20220920, end: 20220920
  2. CYCLOPHOSPHAMIDE [Suspect]
     Active Substance: CYCLOPHOSPHAMIDE
     Indication: Triple negative breast cancer
     Dosage: 2ND CYCLE, Q3W
     Route: 065
     Dates: start: 20221011, end: 20221011
  3. CYCLOPHOSPHAMIDE [Suspect]
     Active Substance: CYCLOPHOSPHAMIDE
     Dosage: 3RD CYCLE, Q3W
     Route: 065
     Dates: start: 20221102, end: 20221102
  4. EPIRUBICIN HYDROCHLORIDE [Suspect]
     Active Substance: EPIRUBICIN HYDROCHLORIDE
     Indication: Triple negative breast cancer
     Dosage: 146 MILLIGRAM 1ST CYCLE, Q3W
     Route: 065
     Dates: start: 20220920, end: 20220920
  5. EPIRUBICIN HYDROCHLORIDE [Suspect]
     Active Substance: EPIRUBICIN HYDROCHLORIDE
     Dosage: 2ND CYCLE, Q3W
     Route: 065
     Dates: start: 20221011, end: 20221011
  6. EPIRUBICIN HYDROCHLORIDE [Suspect]
     Active Substance: EPIRUBICIN HYDROCHLORIDE
     Dosage: 3RD CYCLE, Q3W
     Route: 065
     Dates: start: 20221102, end: 20221102
  7. PEMBROLIZUMAB [Suspect]
     Active Substance: PEMBROLIZUMAB
     Dosage: 200 MILLIGRAM, Q3W
     Route: 042
     Dates: start: 20220624, end: 20220624
  8. PEMBROLIZUMAB [Suspect]
     Active Substance: PEMBROLIZUMAB
     Dosage: 200 MILLIGRAM, Q3W
     Route: 042
     Dates: start: 20220719, end: 20220719
  9. PEMBROLIZUMAB [Suspect]
     Active Substance: PEMBROLIZUMAB
     Dosage: 200 MILLIGRAM, Q3W
     Route: 042
     Dates: start: 20221102, end: 20221102
  10. PEMBROLIZUMAB [Suspect]
     Active Substance: PEMBROLIZUMAB
     Indication: Triple negative breast cancer
     Dosage: 200 MILLIGRAM, Q3W
     Route: 042
     Dates: start: 20220809, end: 20220809
  11. PEMBROLIZUMAB [Suspect]
     Active Substance: PEMBROLIZUMAB
     Dosage: 200 MILLIGRAM, Q3W
     Route: 042
     Dates: start: 20220830, end: 20220830
  12. PEMBROLIZUMAB [Suspect]
     Active Substance: PEMBROLIZUMAB
     Dosage: 200 MILLIGRAM, Q3W
     Route: 042
     Dates: start: 20220920, end: 20220920
  13. PEMBROLIZUMAB [Suspect]
     Active Substance: PEMBROLIZUMAB
     Dosage: 200 MILLIGRAM, Q3W
     Route: 042
     Dates: start: 20221011, end: 20221011
  14. CARBOPLATIN [Concomitant]
     Active Substance: CARBOPLATIN
     Indication: Triple negative breast cancer
     Dosage: 183 MILLIGRAM, AUC 1,5, QW
     Route: 065
     Dates: start: 20220607, end: 2022
  15. CARBOPLATIN [Concomitant]
     Active Substance: CARBOPLATIN
     Dosage: 10TH CYCLE, QW
     Route: 065
     Dates: start: 20220830, end: 20220913
  16. PACLITAXEL [Concomitant]
     Active Substance: PACLITAXEL
     Dosage: 126 MILLIGRAM; 80MG/SQ; QW
     Route: 065
     Dates: start: 20220607
  17. PACLITAXEL [Concomitant]
     Active Substance: PACLITAXEL
     Indication: Triple negative breast cancer
     Dosage: 10TH CYCLE, Q3W
     Route: 065
     Dates: start: 20220830, end: 20220913

REACTIONS (6)
  - Hypophysitis [Recovered/Resolved]
  - Migraine [Unknown]
  - Off label use [Unknown]
  - Asthenia [Not Recovered/Not Resolved]
  - Anaemia [Not Recovered/Not Resolved]
  - Hypothyroidism [Not Recovered/Not Resolved]

NARRATIVE: CASE EVENT DATE: 20221111
